FAERS Safety Report 23502473 (Version 1)
Quarter: 2024Q1

REPORT INFORMATION
  Report Type: Spontaneous
  Country: US (occurrence: US)
  Receive Date: 20240208
  Receipt Date: 20240208
  Transmission Date: 20240410
  Serious: No
  Sender: FDA-Public Use
  Company Number: US-INTRA-CELLULAR THERAPIES, INC.-2023ICT00070

PATIENT
  Age: 21 Year
  Sex: Female
  Weight: 58.957 kg

DRUGS (2)
  1. CAPLYTA [Suspect]
     Active Substance: LUMATEPERONE
     Indication: Bipolar I disorder
     Dosage: 42 MG, 1X/DAY
     Route: 048
     Dates: start: 202208
  2. CAPLYTA [Suspect]
     Active Substance: LUMATEPERONE
     Indication: Mania
     Dosage: 42 MG, EVERY 48 HOURS
     Route: 048

REACTIONS (8)
  - Liver disorder [Recovering/Resolving]
  - Blood iron increased [Recovering/Resolving]
  - Weight increased [Recovering/Resolving]
  - Hypersomnia [Recovering/Resolving]
  - Mydriasis [Recovering/Resolving]
  - Off label use [Not Recovered/Not Resolved]
  - Somnolence [Recovering/Resolving]
  - Sedation [Recovering/Resolving]

NARRATIVE: CASE EVENT DATE: 20220101
